FAERS Safety Report 9339297 (Version 2)
Quarter: 2013Q3

REPORT INFORMATION
  Report Type: Spontaneous
  Country: FR (occurrence: FR)
  Receive Date: 20130610
  Receipt Date: 20130923
  Transmission Date: 20140515
  Serious: Yes (Hospitalization)
  Sender: FDA-Public Use
  Company Number: PHHY2013FR038735

PATIENT
  Age: 46 Year
  Sex: Female

DRUGS (12)
  1. TEGRETOL LP [Suspect]
     Indication: BIPOLAR I DISORDER
     Dosage: 200 MG, UNK
     Route: 048
     Dates: start: 20120814, end: 20121115
  2. TEGRETOL LP [Suspect]
     Dosage: 200 MG (1 DF)
     Route: 048
     Dates: start: 20121205, end: 20121217
  3. ZELITREX [Suspect]
     Dosage: 500 MG, UNK
     Route: 048
     Dates: start: 20121124, end: 20121203
  4. DIFFU K [Concomitant]
  5. ZOMIG [Concomitant]
  6. RIVOTRIL [Concomitant]
  7. ABILIFY [Concomitant]
     Indication: BIPOLAR I DISORDER
     Dosage: 500 MG, BID
     Route: 048
     Dates: start: 20121124, end: 20121205
  8. AMOXICILLIN [Concomitant]
     Indication: BRONCHITIS
     Dosage: 1 G, TID
     Route: 048
     Dates: start: 20121001, end: 20121015
  9. ZINNAT [Concomitant]
     Indication: BRONCHITIS
     Dosage: 2 DF, UNK
     Route: 048
     Dates: start: 20121015, end: 20121023
  10. VICTAN [Concomitant]
     Dosage: UNK UKN, UNK
  11. CRESTOR [Concomitant]
     Indication: DYSLIPIDAEMIA
     Dosage: 1 DF, UNK
     Route: 048
     Dates: end: 20121105
  12. TOCOPHEROL [Concomitant]
     Dosage: UNK UKN, UNK

REACTIONS (5)
  - Cholestasis [Recovered/Resolved]
  - Cell death [Recovered/Resolved]
  - Angioimmunoblastic T-cell lymphoma [Recovered/Resolved]
  - Dermatitis exfoliative [Recovered/Resolved]
  - Pyrexia [Recovered/Resolved]
